FAERS Safety Report 7233263-8 (Version None)
Quarter: 2011Q1

REPORT INFORMATION
  Report Type: 
  Country: None (occurrence: None)
  Receive Date: 20110119
  Receipt Date: 20110117
  Transmission Date: 20110831
  Serious: Yes (Life-Threatening, Hospitalization)
  Sender: FDA-Public Use
  Company Number: D0069967A

PATIENT
  Age: 35 Year
  Sex: Male
  Weight: 85 kg

DRUGS (1)
  1. CEFUROXIM AXETIL [Suspect]
     Indication: SELF-MEDICATION
     Route: 048

REACTIONS (4)
  - CARDIOVASCULAR INSUFFICIENCY [None]
  - ANAPHYLACTIC REACTION [None]
  - DRUG HYPERSENSITIVITY [None]
  - HYPOXIC-ISCHAEMIC ENCEPHALOPATHY [None]
